FAERS Safety Report 24118477 (Version 1)
Quarter: 2024Q3

REPORT INFORMATION
  Report Type: Spontaneous
  Country: CN (occurrence: CN)
  Receive Date: 20240722
  Receipt Date: 20240722
  Transmission Date: 20241017
  Serious: Yes (Hospitalization)
  Sender: MERCK KGAA
  Company Number: CN-Merck Healthcare KGaA-2024038556

PATIENT
  Age: 92 Year
  Sex: Male
  Weight: 50 kg

DRUGS (1)
  1. EUTHYROX [Suspect]
     Active Substance: LEVOTHYROXINE SODIUM
     Indication: Hypothyroidism
     Route: 048
     Dates: start: 20240703, end: 20240705

REACTIONS (1)
  - Asthenia [Recovering/Resolving]

NARRATIVE: CASE EVENT DATE: 20240705
